FAERS Safety Report 13294119 (Version 9)
Quarter: 2018Q4

REPORT INFORMATION
  Report Type: Spontaneous
  Country: US (occurrence: US)
  Receive Date: 20170303
  Receipt Date: 20181206
  Transmission Date: 20190204
  Serious: Yes (Life-Threatening, Hospitalization)
  Sender: FDA-Public Use
  Company Number: US-BIOGEN-2017BI00363723

PATIENT
  Age: 8 Year
  Sex: Female
  Weight: 18 kg

DRUGS (4)
  1. SPINRAZA [Suspect]
     Active Substance: NUSINERSEN
     Dosage: 12MG/5ML
     Route: 037
     Dates: start: 20170222
  2. SPINRAZA [Suspect]
     Active Substance: NUSINERSEN
     Indication: SPINAL MUSCULAR ATROPHY
     Route: 037
     Dates: start: 20170125
  3. SPINRAZA [Suspect]
     Active Substance: NUSINERSEN
     Dosage: 12MG/5ML
     Route: 037
     Dates: start: 20170208
  4. SPINRAZA [Suspect]
     Active Substance: NUSINERSEN
     Dosage: 12MG/5ML
     Route: 037
     Dates: start: 20170125

REACTIONS (3)
  - Meningitis streptococcal [Recovered/Resolved]
  - Pallor [Recovered/Resolved]
  - Post lumbar puncture syndrome [Recovered/Resolved]

NARRATIVE: CASE EVENT DATE: 201701
